APPROVED DRUG PRODUCT: PRECEDEX
Active Ingredient: DEXMEDETOMIDINE HYDROCHLORIDE
Strength: EQ 400MCG BASE/100ML (EQ 4MCG BASE/ML)
Dosage Form/Route: INJECTABLE;INJECTION
Application: N021038 | Product #003 | TE Code: AP
Applicant: HOSPIRA INC
Approved: Mar 13, 2013 | RLD: Yes | RS: Yes | Type: RX

PATENTS:
Patent 8242158 | Expires: Jan 4, 2032
Patent 8648106 | Expires: Jan 4, 2032
Patent 10016396 | Expires: Jan 4, 2032
Patent 8338470 | Expires: Jan 4, 2032
Patent 9320712 | Expires: Jan 4, 2032
Patent 9616049 | Expires: Jan 4, 2032
Patent 8455527*PED | Expires: Jul 4, 2032
Patent 8242158*PED | Expires: Jul 4, 2032
Patent 8338470*PED | Expires: Jul 4, 2032
Patent 8648106*PED | Expires: Jul 4, 2032
Patent 9320712*PED | Expires: Jul 4, 2032
Patent 9616049*PED | Expires: Jul 4, 2032
Patent 8455527 | Expires: Jan 4, 2032